FAERS Safety Report 24811417 (Version 2)
Quarter: 2025Q1

REPORT INFORMATION
  Report Type: Spontaneous
  Country: US (occurrence: US)
  Receive Date: 20250106
  Receipt Date: 20250117
  Transmission Date: 20250408
  Serious: Yes (Other)
  Sender: TEVA
  Company Number: US-TEVA-VS-3283119

PATIENT
  Age: 32 Year
  Sex: Female

DRUGS (2)
  1. MEGESTROL [Suspect]
     Active Substance: MEGESTROL
     Indication: Product used for unknown indication
     Route: 065
  2. IBUPROFEN [Concomitant]
     Active Substance: IBUPROFEN
     Indication: Arthralgia
     Route: 065

REACTIONS (5)
  - Calcinosis [Unknown]
  - Hyperphosphataemia [Unknown]
  - Bone hypertrophy [Unknown]
  - Nephrocalcinosis [Unknown]
  - Limb asymmetry [Unknown]
